FAERS Safety Report 5046873-3 (Version None)
Quarter: 2006Q3

REPORT INFORMATION
  Report Type: 
  Country: None (occurrence: None)
  Receive Date: 20060710
  Receipt Date: 20060630
  Transmission Date: 20061208
  Serious: Yes (Death)
  Sender: FDA-Public Use
  Company Number: CL-ABBOTT-06P-034-0337373-00

PATIENT
  Age: 13 Year
  Sex: Male

DRUGS (5)
  1. SEVOFLURANE [Suspect]
     Indication: INDUCTION OF ANAESTHESIA
     Route: 055
     Dates: start: 20060627, end: 20060627
  2. PROPOFOL [Concomitant]
     Indication: INDUCTION OF ANAESTHESIA
     Dates: start: 20060627, end: 20060627
  3. FENTANYL TRANSDERMAL SYSTEM [Concomitant]
     Indication: ANAESTHESIA
     Dates: start: 20060627, end: 20060627
  4. ATRACURIUM BESYLATE [Concomitant]
     Indication: ANAESTHESIA
     Dates: start: 20060627, end: 20060627
  5. NEOSTIGMINE [Concomitant]
     Indication: ANAESTHESIA
     Dates: start: 20060627, end: 20060627

REACTIONS (2)
  - ANAPHYLACTIC REACTION [None]
  - CARDIO-RESPIRATORY ARREST [None]
